FAERS Safety Report 11349518 (Version 1)
Quarter: 2015Q3

REPORT INFORMATION
  Report Type: Spontaneous
  Country: US (occurrence: None)
  Receive Date: 20150805
  Receipt Date: 20150805
  Transmission Date: 20151125
  Serious: No
  Sender: FDA-Public Use
  Company Number: None

PATIENT
  Age: 56 Year
  Sex: Male

DRUGS (11)
  1. IPRATROPIUM [Concomitant]
     Active Substance: IPRATROPIUM
  2. INSULIN GLARGINE [Suspect]
     Active Substance: INSULIN GLARGINE
     Indication: HYPERGLYCAEMIA
     Dosage: 35 UNITS AT BEDTIME SC
     Route: 058
     Dates: start: 20141201, end: 20141201
  3. HEPARIN [Concomitant]
     Active Substance: HEPARIN SODIUM
  4. POTASSIUM CHLORIDE. [Concomitant]
     Active Substance: POTASSIUM CHLORIDE
  5. RANITIDINE [Concomitant]
     Active Substance: RANITIDINE\RANITIDINE HYDROCHLORIDE
  6. FENTANYL. [Concomitant]
     Active Substance: FENTANYL
  7. OXYBUTYNIN [Concomitant]
     Active Substance: OXYBUTYNIN
  8. AZITHROMYCIN [Concomitant]
     Active Substance: AZITHROMYCIN ANHYDROUS
  9. ALBUTEROL NEBULIZING SOLUTION [Concomitant]
  10. CEFPODOXIME [Concomitant]
     Active Substance: CEFPODOXIME
  11. PREDNISONE. [Concomitant]
     Active Substance: PREDNISONE

REACTIONS (1)
  - Blood glucose decreased [None]

NARRATIVE: CASE EVENT DATE: 20141202
